FAERS Safety Report 14604343 (Version 3)
Quarter: 2018Q2

REPORT INFORMATION
  Report Type: Spontaneous
  Country: US (occurrence: US)
  Receive Date: 20180306
  Receipt Date: 20180612
  Transmission Date: 20180711
  Serious: No
  Sender: FDA-Public Use
  Company Number: US-BRISTOL-MYERS SQUIBB COMPANY-BMS-2018-021228

PATIENT
  Sex: Female
  Weight: 82.86 kg

DRUGS (1)
  1. ORENCIA [Suspect]
     Active Substance: ABATACEPT
     Indication: RHEUMATOID ARTHRITIS
     Dosage: 125 MG, QWK
     Route: 058
     Dates: start: 201803, end: 20180501

REACTIONS (6)
  - Sinusitis [Unknown]
  - Incontinence [Unknown]
  - Hypersensitivity [Unknown]
  - Sinus disorder [Unknown]
  - Headache [Unknown]
  - Tooth infection [Unknown]
